FAERS Safety Report 5359665-2 (Version None)
Quarter: 2007Q2

REPORT INFORMATION
  Report Type: 
  Country: None (occurrence: None)
  Receive Date: 20070530
  Receipt Date: 20070320
  Transmission Date: 20071010
  Serious: No
  Sender: FDA-Public Use
  Company Number: 2007PV032058

PATIENT
  Age: 61 Year
  Sex: Male

DRUGS (2)
  1. BYETTA [Suspect]
     Indication: DIABETES MELLITUS NON-INSULIN-DEPENDENT
     Dosage: 5 MCG;QD;SC
     Route: 058
     Dates: start: 20070315
  2. METFORMIN AND GLYBURIDE [Concomitant]

REACTIONS (3)
  - APPETITE DISORDER [None]
  - DIARRHOEA [None]
  - DIZZINESS [None]
